FAERS Safety Report 6034750-0 (Version None)
Quarter: 2009Q1

REPORT INFORMATION
  Report Type: 
  Country: None (occurrence: None)
  Receive Date: 20090112
  Receipt Date: 20081215
  Transmission Date: 20090719
  Serious: Yes (Hospitalization)
  Sender: FDA-Public Use
  Company Number: GB-PFIZER INC-2008087137

PATIENT

DRUGS (4)
  1. VORICONAZOLE [Suspect]
     Indication: GASTROINTESTINAL CANDIDIASIS
     Dosage: 200 MG, 2X/DAY
     Route: 048
     Dates: start: 20040820, end: 20040915
  2. OMEPRAZOLE [Interacting]
     Indication: DYSPEPSIA
     Dosage: 40 MG, 2X/DAY
     Route: 048
     Dates: start: 20040815
  3. ITRACONAZOLE [Concomitant]
  4. AMPHOTERICIN B [Concomitant]
     Dates: start: 20040101

REACTIONS (8)
  - COLLAPSE OF LUNG [None]
  - DRUG INTERACTION [None]
  - DRUG INTOLERANCE [None]
  - DRUG LEVEL INCREASED [None]
  - NEUTROPENIA [None]
  - PERICARDIAL EFFUSION [None]
  - SUPRAVENTRICULAR TACHYCARDIA [None]
  - VENTRICULAR DYSFUNCTION [None]
